FAERS Safety Report 7661947-6 (Version None)
Quarter: 2011Q3

REPORT INFORMATION
  Report Type: 
  Country: None (occurrence: None)
  Receive Date: 20110805
  Receipt Date: 20101203
  Transmission Date: 20111222
  Serious: No
  Sender: FDA-Public Use
  Company Number: US-ABBOTT-10P-163-0689838-00

PATIENT
  Sex: Male
  Weight: 74.91 kg

DRUGS (4)
  1. NIASPAN [Suspect]
     Indication: BLOOD CHOLESTEROL INCREASED
     Dates: start: 20100801
  2. NAPROXEN (ALEVE) [Concomitant]
     Indication: PAIN
  3. FLOMAX [Concomitant]
     Indication: URINARY TRACT DISORDER
  4. FINASTERIDE [Concomitant]
     Indication: URINARY TRACT DISORDER

REACTIONS (3)
  - MIDDLE INSOMNIA [None]
  - PARAESTHESIA [None]
  - FLUSHING [None]
